FAERS Safety Report 14877732 (Version 1)
Quarter: 2018Q2

REPORT INFORMATION
  Report Type: Spontaneous
  Country: US (occurrence: US)
  Receive Date: 20180510
  Receipt Date: 20180510
  Transmission Date: 20180711
  Serious: No
  Sender: FDA-Public Use
  Company Number: US-ANIPHARMA-2018-US-001051

PATIENT
  Age: 47 Year
  Sex: Female
  Weight: 129.28 kg

DRUGS (7)
  1. UNSPECIFIED ANTI-HISTAMINE [Concomitant]
  2. ATORVASTATIN [Concomitant]
     Active Substance: ATORVASTATIN
  3. LATANOPROST. [Concomitant]
     Active Substance: LATANOPROST
  4. JANUVIA [Concomitant]
     Active Substance: SITAGLIPTIN PHOSPHATE
  5. PROGESTERONE. [Concomitant]
     Active Substance: PROGESTERONE
  6. LITHOBID [Suspect]
     Active Substance: LITHIUM CARBONATE
     Indication: BIPOLAR DISORDER
     Dosage: 4 TABLETS AT BEDTIME
     Route: 048
     Dates: start: 20180102, end: 20180118
  7. TRILEPTAL [Concomitant]
     Active Substance: OXCARBAZEPINE

REACTIONS (3)
  - Diarrhoea [Recovered/Resolved]
  - Thinking abnormal [Recovered/Resolved]
  - Dizziness [Recovered/Resolved]

NARRATIVE: CASE EVENT DATE: 20180104
